FAERS Safety Report 9605269 (Version 1)
Quarter: 2013Q4

REPORT INFORMATION
  Report Type: Spontaneous
  Country: JP (occurrence: JP)
  Receive Date: 20131008
  Receipt Date: 20131008
  Transmission Date: 20140711
  Serious: Yes (Hospitalization)
  Sender: FDA-Public Use
  Company Number: JP-GLAXOSMITHKLINE-B0928072A

PATIENT
  Age: 87 Year
  Sex: Female

DRUGS (4)
  1. VALTREX [Suspect]
     Indication: HERPES ZOSTER
     Dosage: 1000MG THREE TIMES PER DAY
     Route: 048
     Dates: start: 20130928, end: 20131002
  2. LOXONIN [Concomitant]
     Dosage: 60MG THREE TIMES PER DAY
     Route: 048
     Dates: start: 20130928, end: 20131002
  3. METHYCOBAL [Concomitant]
     Dosage: 500MCG THREE TIMES PER DAY
     Route: 048
     Dates: start: 20130928, end: 20131002
  4. CYTOTEC [Concomitant]
     Dosage: 200MCG FOUR TIMES PER DAY
     Route: 048
     Dates: start: 20130928, end: 20131002

REACTIONS (4)
  - Renal failure [Unknown]
  - Somnolence [Not Recovered/Not Resolved]
  - Vomiting [Not Recovered/Not Resolved]
  - Azotaemia [Unknown]
